FAERS Safety Report 17728030 (Version 1)
Quarter: 2020Q2

REPORT INFORMATION
  Report Type: Spontaneous
  Country: GB (occurrence: GB)
  Receive Date: 20200430
  Receipt Date: 20200430
  Transmission Date: 20200714
  Serious: Yes (Death)
  Sender: FDA-Public Use
  Company Number: GB-PFIZER INC-GBWYE328210JAN05

PATIENT
  Age: 92 Year
  Sex: Female
  Weight: 40 kg

DRUGS (4)
  1. IBUPROFEN. [Suspect]
     Active Substance: IBUPROFEN
     Indication: CHEST PAIN
     Dosage: 400 MG, 4X/DAY
     Route: 048
     Dates: start: 20041202, end: 20041209
  2. PARACETAMOL [Concomitant]
     Active Substance: ACETAMINOPHEN
     Indication: CHEST PAIN
     Dosage: UNK
     Route: 048
     Dates: start: 20041202, end: 20041210
  3. SENNA ALEXANDRINA [Concomitant]
     Active Substance: SENNA LEAF
     Dosage: 2 DF
     Route: 048
     Dates: start: 20041208, end: 20041210
  4. LACTULOSE. [Concomitant]
     Active Substance: LACTULOSE
     Indication: CONSTIPATION
     Dosage: 10 ML
     Route: 048
     Dates: start: 20041209, end: 20041210

REACTIONS (7)
  - Amylase increased [Fatal]
  - Dehydration [Fatal]
  - Abdominal tenderness [Fatal]
  - Pancreatitis [Fatal]
  - Constipation [Fatal]
  - Abdominal pain [Fatal]
  - Blood creatinine increased [Fatal]

NARRATIVE: CASE EVENT DATE: 20041209
